FAERS Safety Report 20588939 (Version 4)
Quarter: 2022Q2

REPORT INFORMATION
  Report Type: Spontaneous
  Country: US (occurrence: US)
  Receive Date: 20220314
  Receipt Date: 20220606
  Transmission Date: 20220721
  Serious: No
  Sender: FDA-Public Use
  Company Number: US-BIOGEN-2021BI01037070

PATIENT
  Age: 42 Year
  Sex: Female

DRUGS (1)
  1. TYSABRI [Suspect]
     Active Substance: NATALIZUMAB
     Indication: Multiple sclerosis
     Route: 065
     Dates: start: 20201107

REACTIONS (13)
  - Product dose omission issue [Unknown]
  - Therapeutic response shortened [Unknown]
  - Multiple sclerosis relapse [Not Recovered/Not Resolved]
  - Hypoaesthesia [Unknown]
  - Cognitive disorder [Unknown]
  - Muscular weakness [Unknown]
  - Posture abnormal [Unknown]
  - Asthenia [Unknown]
  - Paraesthesia [Unknown]
  - COVID-19 [Unknown]
  - Fatigue [Unknown]
  - Headache [Unknown]
  - Depression [Unknown]

NARRATIVE: CASE EVENT DATE: 20211201
